FAERS Safety Report 12157385 (Version 1)
Quarter: 2016Q1

REPORT INFORMATION
  Report Type: Spontaneous
  Country: US (occurrence: US)
  Receive Date: 20160308
  Receipt Date: 20160308
  Transmission Date: 20160526
  Serious: No
  Sender: FDA-Public Use
  Company Number: US-ASTRAZENECA-2016SE19720

PATIENT
  Age: 724 Month
  Sex: Male
  Weight: 83.9 kg

DRUGS (24)
  1. SEROQUEL XR [Suspect]
     Active Substance: QUETIAPINE FUMARATE
     Indication: OBSESSIVE-COMPULSIVE DISORDER
     Dosage: TITRATION FROM 50MG UP TO 200MG AT NIGHT
     Route: 048
  2. SEROQUEL XR [Suspect]
     Active Substance: QUETIAPINE FUMARATE
     Indication: GENERALISED ANXIETY DISORDER
     Dosage: QUETIAPINE FUMARATE  50 MG AT NIGHT
     Route: 048
  3. SEROQUEL XR [Suspect]
     Active Substance: QUETIAPINE FUMARATE
     Indication: GENERALISED ANXIETY DISORDER
     Route: 048
     Dates: start: 201507
  4. SEROQUEL XR [Suspect]
     Active Substance: QUETIAPINE FUMARATE
     Indication: BIPOLAR DISORDER
     Route: 048
     Dates: start: 201507
  5. SEROQUEL XR [Suspect]
     Active Substance: QUETIAPINE FUMARATE
     Indication: GENERALISED ANXIETY DISORDER
     Dosage: TITRATION FROM 50MG UP TO 200MG AT NIGHT
     Route: 048
  6. LATUDA [Concomitant]
     Active Substance: LURASIDONE HYDROCHLORIDE
  7. SEROQUEL XR [Suspect]
     Active Substance: QUETIAPINE FUMARATE
     Indication: TACHYPHRENIA
     Route: 048
     Dates: start: 201507
  8. SEROQUEL XR [Suspect]
     Active Substance: QUETIAPINE FUMARATE
     Indication: BIPOLAR DISORDER
     Route: 048
  9. SEROQUEL XR [Suspect]
     Active Substance: QUETIAPINE FUMARATE
     Indication: OBSESSIVE-COMPULSIVE DISORDER
     Route: 048
  10. SEROQUEL XR [Suspect]
     Active Substance: QUETIAPINE FUMARATE
     Indication: BIPOLAR DISORDER
     Route: 048
  11. SEROQUEL XR [Suspect]
     Active Substance: QUETIAPINE FUMARATE
     Indication: OBSESSIVE-COMPULSIVE DISORDER
     Route: 048
  12. SEROQUEL XR [Suspect]
     Active Substance: QUETIAPINE FUMARATE
     Indication: GENERALISED ANXIETY DISORDER
     Route: 048
  13. SEROQUEL XR [Suspect]
     Active Substance: QUETIAPINE FUMARATE
     Indication: TACHYPHRENIA
     Dosage: TITRATION FROM 50MG UP TO 200MG AT NIGHT
     Route: 048
  14. SEROQUEL XR [Suspect]
     Active Substance: QUETIAPINE FUMARATE
     Indication: OBSESSIVE-COMPULSIVE DISORDER
     Dosage: QUETIAPINE FUMARATE  50 MG AT NIGHT
     Route: 048
  15. SEROQUEL XR [Suspect]
     Active Substance: QUETIAPINE FUMARATE
     Indication: OBSESSIVE-COMPULSIVE DISORDER
     Route: 048
     Dates: start: 201507
  16. SEROQUEL XR [Suspect]
     Active Substance: QUETIAPINE FUMARATE
     Indication: TACHYPHRENIA
     Route: 048
  17. SEROQUEL XR [Suspect]
     Active Substance: QUETIAPINE FUMARATE
     Indication: BIPOLAR DISORDER
     Dosage: TITRATION FROM 50MG UP TO 200MG AT NIGHT
     Route: 048
  18. SEROQUEL XR [Suspect]
     Active Substance: QUETIAPINE FUMARATE
     Indication: BIPOLAR DISORDER
     Dosage: QUETIAPINE FUMARATE  50 MG AT NIGHT
     Route: 048
  19. PAXIL [Concomitant]
     Active Substance: PAROXETINE HYDROCHLORIDE
     Route: 065
  20. SEROQUEL XR [Suspect]
     Active Substance: QUETIAPINE FUMARATE
     Indication: TACHYPHRENIA
     Dosage: QUETIAPINE FUMARATE  50 MG AT NIGHT
     Route: 048
  21. LORAZEPAM. [Concomitant]
     Active Substance: LORAZEPAM
     Route: 065
  22. PROZAC [Concomitant]
     Active Substance: FLUOXETINE HYDROCHLORIDE
     Dosage: GENERIC
  23. SEROQUEL XR [Suspect]
     Active Substance: QUETIAPINE FUMARATE
     Indication: GENERALISED ANXIETY DISORDER
     Route: 048
  24. SEROQUEL XR [Suspect]
     Active Substance: QUETIAPINE FUMARATE
     Indication: TACHYPHRENIA
     Route: 048

REACTIONS (7)
  - Malaise [Unknown]
  - Sleep disorder [Unknown]
  - Tachyphrenia [Unknown]
  - Obsessive thoughts [Unknown]
  - Drug dose omission [Unknown]
  - Weight increased [Unknown]
  - Asthenia [Unknown]

NARRATIVE: CASE EVENT DATE: 201507
